FAERS Safety Report 20210955 (Version 1)
Quarter: 2021Q4

REPORT INFORMATION
  Report Type: Spontaneous
  Country: JP (occurrence: JP)
  Receive Date: 20211221
  Receipt Date: 20211221
  Transmission Date: 20220303
  Serious: Yes (Other)
  Sender: FDA-Public Use
  Company Number: JP-SUN PHARMACEUTICAL INDUSTRIES LTD-2021R1-321129

PATIENT
  Age: 66 Year
  Sex: Male

DRUGS (2)
  1. PACLITAXEL [Suspect]
     Active Substance: PACLITAXEL
     Indication: Chemotherapy
     Dosage: 40 MILLIGRAM/SQ. METER/DAYS 1,8,AND 15 EVERY 3 WEEKS/2 CYCLES
     Route: 065
  2. CARBOPLATIN [Suspect]
     Active Substance: CARBOPLATIN
     Indication: Chemotherapy
     Dosage: UNK/ (AREA UNDER CURVE 2)/DAYS 1,8,AND 15 EVERY 3 WEEKS/2 CYCLES
     Route: 065

REACTIONS (1)
  - Metastases to central nervous system [Recovered/Resolved]
